FAERS Safety Report 4543803-5 (Version None)
Quarter: 2005Q1

REPORT INFORMATION
  Report Type: 
  Country: None (occurrence: None)
  Receive Date: 20050103
  Receipt Date: 20041222
  Transmission Date: 20050727
  Serious: Yes (Other)
  Sender: FDA-Public Use
  Company Number: 2004118283

PATIENT
  Sex: Male
  Weight: 113.3993 kg

DRUGS (23)
  1. NEOSPORIN [Suspect]
     Indication: EXCORIATION
     Dosage: TID PRN, NASAL
     Route: 045
  2. OXYGEN (OXYGEN) [Concomitant]
  3. METHYLPHENIDATE HCL [Concomitant]
  4. BUSPIRONE HCL [Concomitant]
  5. GABAPENTIN [Concomitant]
  6. METOLAZONE [Concomitant]
  7. BUPROPION (BUPROPION) [Concomitant]
  8. POTASSIUM CHLORIDE [Concomitant]
  9. METOPROLOL TARTRATE [Concomitant]
  10. PENTOXIFYLLINE [Concomitant]
  11. ESCITALOPRAM (ESCITALOPRAM) [Concomitant]
  12. ROSIGLITAZONE MALEATE (RISOGLITAZONE MALEATE) [Concomitant]
  13. FUROSEMIDE (FUIROSEMIDE) [Concomitant]
  14. TERAZOSIN (TERAZOSIN) [Concomitant]
  15. METFORMIM (METFORMIN) [Concomitant]
  16. GEMFIBROZIL [Concomitant]
  17. WARFARIN SODIUM [Concomitant]
  18. BUPROPION HYDROCHLORIDE [Concomitant]
  19. RISPERDAL [Concomitant]
  20. FOSINOPRIL SODIUM [Concomitant]
  21. CLONAZEPAM [Concomitant]
  22. PRIMIDONE [Concomitant]
  23. ROFECOXIB [Concomitant]

REACTIONS (6)
  - CARDIAC FAILURE CONGESTIVE [None]
  - PRECANCEROUS SKIN LESION [None]
  - PSORIASIS [None]
  - RENAL FAILURE [None]
  - SEBORRHOEA [None]
  - SKIN CANCER [None]
